FAERS Safety Report 25211708 (Version 4)
Quarter: 2025Q2

REPORT INFORMATION
  Report Type: Report from Study
  Country: ES (occurrence: ES)
  Receive Date: 20250418
  Receipt Date: 20250508
  Transmission Date: 20250717
  Serious: Yes (Other)
  Sender: RECORDATI
  Company Number: ES-RECORDATI RARE DISEASE INC.-2025002706

PATIENT
  Sex: Female

DRUGS (3)
  1. SILTUXIMAB [Suspect]
     Active Substance: SILTUXIMAB
     Indication: Cytokine release syndrome
  2. SILTUXIMAB [Suspect]
     Active Substance: SILTUXIMAB
     Indication: Off label use
  3. TOCILIZUMAB [Suspect]
     Active Substance: TOCILIZUMAB
     Indication: Cytokine release syndrome

REACTIONS (4)
  - Immune effector cell-associated neurotoxicity syndrome [Recovered/Resolved]
  - Pseudomonal bacteraemia [Recovered/Resolved]
  - Immune effector cell-associated haematotoxicity [Recovered/Resolved]
  - Drug effective for unapproved indication [Recovered/Resolved]
